FAERS Safety Report 21381688 (Version 3)
Quarter: 2022Q4

REPORT INFORMATION
  Report Type: Report from Study
  Country: US (occurrence: US)
  Receive Date: 20220927
  Receipt Date: 20221013
  Transmission Date: 20230113
  Serious: Yes (Hospitalization)
  Sender: FDA-Public Use
  Company Number: US-GBT-016558

PATIENT
  Age: 23 Year
  Sex: Male

DRUGS (24)
  1. OXBRYTA [Suspect]
     Active Substance: VOXELOTOR
     Indication: Sickle cell disease
     Dosage: ON AN UNKNOWN DATE IN 2022, THE PATIENT RECEIVED THE LAST DOSE OF THE OXBRYTA PRIOR TO EVENT ONSET.
     Dates: start: 20220408
  2. clindamycin-benzoyl peroxide (Benzaclin) 1-5% gel [Concomitant]
     Indication: Acne
     Dosage: TIME INTERVAL: AS NECESSARY: 1 APPLICATION PRN
     Route: 061
     Dates: start: 20150425
  3. sertraline (zoloft) 50 mg tablet [Concomitant]
     Indication: Anxiety
     Route: 048
     Dates: start: 20200909
  4. amoxicillin (Amoxil) 250 mg capsule [Concomitant]
     Indication: Asplenia
     Route: 048
     Dates: start: 20190322
  5. famotidine (Pepcid) 20 mg tablet [Concomitant]
     Indication: Sickle cell disease
     Route: 048
     Dates: start: 20220728
  6. cholecalciferol (vitamin D3) 25 mcg (1,000 unit) tablet [Concomitant]
     Indication: Product used for unknown indication
     Dosage: 2 TABLETS
     Route: 048
     Dates: start: 20220708
  7. Odansetron (zofran) 8 mg tablet [Concomitant]
     Indication: Nausea
     Dosage: TIME INTERVAL: AS NECESSARY: EVERY 8HOURS PRN
     Route: 048
     Dates: start: 20220411
  8. cetirizine (zyrtec) 10 mg tablet [Concomitant]
     Indication: Product used for unknown indication
     Route: 048
     Dates: start: 2012
  9. ergocalciferol (drisdol) 1,250 mcg (50,000 unit) capsule [Concomitant]
     Indication: Product used for unknown indication
     Route: 048
     Dates: start: 20150917, end: 20220728
  10. lidocaine (aspercreme) 4% transdermal patch [Concomitant]
     Indication: Sickle cell disease
     Dosage: 1 PATCH
     Route: 062
     Dates: start: 20220821
  11. LISINOPRIL [Concomitant]
     Active Substance: LISINOPRIL
     Indication: Hypertension
     Route: 048
     Dates: start: 20220401
  12. folic acid( folvite) 1 mg tablet [Concomitant]
     Indication: Sickle cell disease
     Route: 048
     Dates: start: 20121214
  13. hydroxyurea 500mg capsule [Concomitant]
     Indication: Sickle cell disease
     Dosage: ALTERNATE 1500/2000MG
     Route: 048
     Dates: start: 20170719
  14. quetiapine (seroquel) 50 mg tablet [Concomitant]
     Indication: Product used for unknown indication
     Route: 048
     Dates: start: 20220331
  15. gabapentin (neurontin) 600 mg tablet [Concomitant]
     Indication: Sickle cell disease
     Route: 048
     Dates: start: 20220809
  16. naloxone (narcan) 4 mg/actuation nasal spray [Concomitant]
     Indication: Reversal of opiate activity
     Dosage: TIME INTERVAL: AS NECESSARY: 1 SPRAY
     Route: 045
     Dates: start: 20210812
  17. mrophine (MS CONTIN) 60 mg 12 extended release tablet [Concomitant]
     Indication: Sickle cell disease
     Route: 048
     Dates: start: 20220531
  18. ibuprofen (motrin) 600 mg tablet [Concomitant]
     Indication: Sickle cell disease
     Dosage: TIME INTERVAL: AS NECESSARY: EVERY 6HOURS PRN
     Route: 048
     Dates: start: 20200402
  19. cyclobenaprine (Flexeril) 5 mg tablet [Concomitant]
     Indication: Sickle cell disease
     Dosage: TIME INTERVAL: 0.33333333 DAYS
     Route: 048
     Dates: start: 20220613, end: 20220713
  20. crizanlizumab-tmca (Adakveo) in NaCl 0.9% 100 mL infusion [Concomitant]
     Indication: Sickle cell disease
     Dosage: MONTHLY INFUSION
     Route: 042
     Dates: start: 20211217
  21. oxycodone IR (roxicodone) 15 mg immediate release tablet [Concomitant]
     Indication: Sickle cell disease
     Dosage: EVERY 4 HOURS (AS NECESSARY)
     Route: 048
     Dates: start: 20200923
  22. diphenhydramine (benadryl) 25 mg capsule [Concomitant]
     Indication: Pruritus
     Dosage: TIME INTERVAL: AS NECESSARY: PRN
     Route: 048
     Dates: start: 20220113
  23. triamcinolone acetonide (kenalog) 0.5% cream [Concomitant]
     Indication: Dermatitis atopic
     Dosage: 1 APPLICATION BID PRN
     Route: 061
     Dates: start: 20200917
  24. senna-docusate (pericolace) 8.6-50 mg tablet [Concomitant]
     Indication: Constipation
     Dosage: 1 TABLET BID PRN
     Route: 048
     Dates: start: 20210423

REACTIONS (1)
  - Sickle cell anaemia with crisis [Recovered/Resolved]

NARRATIVE: CASE EVENT DATE: 20220815
